FAERS Safety Report 6133468-3 (Version None)
Quarter: 2009Q1

REPORT INFORMATION
  Report Type: 
  Country: None (occurrence: None)
  Receive Date: 20090326
  Receipt Date: 20090325
  Transmission Date: 20090719
  Serious: Yes (Life-Threatening)
  Sender: FDA-Public Use
  Company Number: JP-ASTRAZENECA-2009AP01796

PATIENT
  Age: 70 Year
  Sex: Male

DRUGS (4)
  1. DIPRIVAN [Suspect]
     Indication: GENERAL ANAESTHESIA
     Dosage: DOSE UNKNOWN
     Route: 042
     Dates: start: 20090212, end: 20090212
  2. DIPRIVAN [Suspect]
     Dosage: DOSE UNKNOWN
     Route: 042
     Dates: start: 20090201, end: 20090201
  3. ULTIVA [Suspect]
     Dosage: DOSE UNKNOWN
     Route: 042
  4. MIOBLOCK [Concomitant]
     Route: 042

REACTIONS (3)
  - ARTERIOSPASM CORONARY [None]
  - ELECTROCARDIOGRAM ST SEGMENT ELEVATION [None]
  - VENTRICULAR TACHYCARDIA [None]
